FAERS Safety Report 21454720 (Version 1)
Quarter: 2022Q4

REPORT INFORMATION
  Report Type: Spontaneous
  Country: US (occurrence: None)
  Receive Date: 20221014
  Receipt Date: 20221014
  Transmission Date: 20230113
  Serious: No
  Sender: FDA-Public Use
  Company Number: 2022A321643

PATIENT
  Sex: Female

DRUGS (1)
  1. FASENRA [Suspect]
     Active Substance: BENRALIZUMAB
     Route: 058

REACTIONS (9)
  - Pneumonia [Unknown]
  - Wheezing [Unknown]
  - Aphonia [Unknown]
  - Fine motor skill dysfunction [Unknown]
  - Walking disability [Unknown]
  - Impaired driving ability [Unknown]
  - Condition aggravated [Unknown]
  - Dyspnoea [Unknown]
  - Drug delivery system issue [Unknown]
